FAERS Safety Report 8102345-0 (Version None)
Quarter: 2012Q1

REPORT INFORMATION
  Report Type: 
  Country: None (occurrence: None)
  Receive Date: 20120131
  Receipt Date: 20120131
  Transmission Date: 20120608
  Serious: Yes (Other)
  Sender: FDA-Public Use
  Company Number: None

PATIENT
  Sex: Female
  Weight: 90.7194 kg

DRUGS (2)
  1. BONIVA [Suspect]
     Indication: OSTEOPOROSIS
     Dosage: 1 PER MONTH REGULAR 1ST DAY
     Dates: start: 20061005, end: 20100421
  2. ACTONEL [Suspect]
     Indication: OSTEOPOROSIS
     Dosage: 1 WEEKLY REGULAR 1ST DAY
     Dates: start: 20040517, end: 20060215

REACTIONS (5)
  - DYSPHAGIA [None]
  - JAW CYST [None]
  - TOOTH LOSS [None]
  - INFLAMMATION [None]
  - PAIN [None]
